FAERS Safety Report 4808670-0 (Version None)
Quarter: 2005Q4

REPORT INFORMATION
  Report Type: 
  Country: None (occurrence: None)
  Receive Date: 20051021
  Receipt Date: 20010730
  Transmission Date: 20060501
  Serious: No
  Sender: FDA-Public Use
  Company Number: DE_010706419

PATIENT
  Age: 17 Year
  Sex: Female

DRUGS (2)
  1. ZYPREXA [Suspect]
     Indication: PSYCHOTIC DISORDER
     Dosage: 10 MG/DAY
     Dates: start: 20010401, end: 20010719
  2. AKINETON [Concomitant]

REACTIONS (1)
  - PLATELET COUNT DECREASED [None]
